FAERS Safety Report 8931236 (Version 1)
Quarter: 2012Q4

REPORT INFORMATION
  Report Type: 
  Country: IT (occurrence: IT)
  Receive Date: 20121128
  Receipt Date: 20121128
  Transmission Date: 20130627
  Serious: Yes (Hospitalization)
  Sender: FDA-Public Use
  Company Number: IT-TEVA-371489ISR

PATIENT
  Age: 76 Year
  Sex: Female

DRUGS (7)
  1. LORAZEPAM [Suspect]
     Indication: INSOMNIA
     Route: 048
     Dates: start: 20121018, end: 20121018
  2. LORAZEPAM [Suspect]
     Route: 048
     Dates: start: 20121018, end: 20121018
  3. EUTIROX [Concomitant]
  4. SERTRALINE HYDROCHLORIDE [Concomitant]
  5. METFORMIN HYDROCHLORIDE [Concomitant]
  6. LEVODOPA/BENSERAZIDE [Concomitant]
  7. AMLODIPINE BESILATE [Concomitant]

REACTIONS (4)
  - Sopor [Recovered/Resolved]
  - Asthenia [Recovered/Resolved]
  - Slow speech [Recovered/Resolved]
  - Drug abuse [Recovered/Resolved]
